FAERS Safety Report 5265435-6 (Version None)
Quarter: 2007Q1

REPORT INFORMATION
  Report Type: 
  Country: None (occurrence: None)
  Receive Date: 20070314
  Receipt Date: 20070302
  Transmission Date: 20070707
  Serious: Yes (Disabling, Other)
  Sender: FDA-Public Use
  Company Number: FR-PFIZER INC-2007000430

PATIENT
  Sex: Male
  Weight: 100 kg

DRUGS (2)
  1. NEURONTIN [Suspect]
     Indication: POLYNEUROPATHY
     Route: 048
  2. NEURONTIN [Suspect]
     Indication: NEUROGENIC BLADDER

REACTIONS (9)
  - ABNORMAL BEHAVIOUR [None]
  - DEPRESSED LEVEL OF CONSCIOUSNESS [None]
  - FATIGUE [None]
  - GAIT DISTURBANCE [None]
  - MEMORY IMPAIRMENT [None]
  - MENTAL DISORDER [None]
  - MUSCULAR WEAKNESS [None]
  - POLYNEUROPATHY [None]
  - SOMNOLENCE [None]
